FAERS Safety Report 4938431-3 (Version None)
Quarter: 2006Q1

REPORT INFORMATION
  Report Type: 
  Country: None (occurrence: None)
  Receive Date: 20060306
  Receipt Date: 20060215
  Transmission Date: 20060701
  Serious: Yes (Hospitalization)
  Sender: FDA-Public Use
  Company Number: US200602003481

PATIENT
  Age: 7 Year
  Sex: Male
  Weight: 20 kg

DRUGS (1)
  1. STRATTERA [Suspect]
     Dosage: 80 MG
     Dates: end: 20060214

REACTIONS (2)
  - MOVEMENT DISORDER [None]
  - PRESCRIBED OVERDOSE [None]
